FAERS Safety Report 14683273 (Version 1)
Quarter: 2018Q1

REPORT INFORMATION
  Report Type: Spontaneous
  Country: US (occurrence: US)
  Receive Date: 20180326
  Receipt Date: 20180326
  Transmission Date: 20180509
  Serious: No
  Sender: FDA-Public Use
  Company Number: None

PATIENT
  Age: 78 Year
  Sex: Female
  Weight: 68.04 kg

DRUGS (5)
  1. HAIR SKIN NAILS [Concomitant]
  2. MYCOPHENOLATE [Suspect]
     Active Substance: MYCOPHENOLIC ACID
     Indication: SYSTEMIC LUPUS ERYTHEMATOSUS
     Dosage: DOSE - 2 PILLS?FREQUENCY - 2 PILLS 2XDAY
     Route: 048
     Dates: start: 2013, end: 20180301
  3. PRESERVISION [Concomitant]
     Active Substance: MINERALS\VITAMINS
  4. VITAMIN D [Concomitant]
     Active Substance: CHOLECALCIFEROL
  5. WARFARIN [Concomitant]
     Active Substance: WARFARIN

REACTIONS (2)
  - Rash [None]
  - Blood pressure increased [None]

NARRATIVE: CASE EVENT DATE: 20180217
